FAERS Safety Report 5547940-8 (Version None)
Quarter: 2007Q4

REPORT INFORMATION
  Report Type: 
  Country: None (occurrence: None)
  Receive Date: 20071128
  Receipt Date: 20070327
  Transmission Date: 20080405
  Serious: Yes (Other)
  Sender: FDA-Public Use
  Company Number: 2007025896

PATIENT
  Sex: Female
  Weight: 7305 kg

DRUGS (2)
  1. LIPITOR [Suspect]
     Indication: BLOOD CHOLESTEROL INCREASED
     Dosage: 10 MG (10 MG, 1IN 1 D)
     Dates: start: 20060701, end: 20070315
  2. SYNTHROID [Concomitant]

REACTIONS (1)
  - HEPATIC ENZYME [None]
